FAERS Safety Report 20827032 (Version 1)
Quarter: 2022Q2

REPORT INFORMATION
  Report Type: Spontaneous
  Country: US (occurrence: None)
  Receive Date: 20220513
  Receipt Date: 20220513
  Transmission Date: 20220721
  Serious: Yes (Hospitalization)
  Sender: FDA-Public Use
  Company Number: None

PATIENT
  Age: 73 Year
  Sex: Female
  Weight: 57.6 kg

DRUGS (7)
  1. HUMIRA [Suspect]
     Active Substance: ADALIMUMAB
  2. LEVOTHYROXINE [Concomitant]
     Active Substance: LEVOTHYROXINE
  3. OMEPRAZOLE [Concomitant]
     Active Substance: OMEPRAZOLE
  4. LOSARTAN [Concomitant]
     Active Substance: LOSARTAN
  5. FAMOTIDINE [Concomitant]
     Active Substance: FAMOTIDINE
  6. ALBUTEROL SULFATE [Concomitant]
     Active Substance: ALBUTEROL SULFATE
  7. B Complex-C-Folic Acid [Concomitant]

REACTIONS (13)
  - Pelvic pain [None]
  - Urinary tract infection [None]
  - Vulvovaginal pain [None]
  - Pollakiuria [None]
  - Dysuria [None]
  - Adnexa uteri pain [None]
  - Pathogen resistance [None]
  - Escherichia infection [None]
  - Leukocytosis [None]
  - Acute kidney injury [None]
  - Blood creatinine increased [None]
  - Genito-pelvic pain/penetration disorder [None]
  - Pudendal canal syndrome [None]

NARRATIVE: CASE EVENT DATE: 20200818
